FAERS Safety Report 8778980 (Version 1)
Quarter: 2012Q4

REPORT INFORMATION
  Report Type: Report from Study
  Country: DE (occurrence: DE)
  Receive Date: 20120912
  Receipt Date: 20120912
  Transmission Date: 20130627
  Serious: Yes (Death)
  Sender: FDA-Public Use
  Company Number: DE-CELGENEUS-062-21880-12072865

PATIENT
  Age: 60 Year
  Sex: Female

DRUGS (4)
  1. REVLIMID [Suspect]
     Indication: MYELODYSPLASTIC SYNDROME
     Route: 048
  2. REVLIMID [Suspect]
     Indication: ANAEMIA
  3. REVLIMID [Suspect]
     Indication: PURPURA
  4. REVLIMID [Suspect]
     Indication: HAEMORRHAGIC DISORDER

REACTIONS (1)
  - Death [Fatal]
